FAERS Safety Report 7341997-X (Version None)
Quarter: 2011Q1

REPORT INFORMATION
  Report Type: 
  Country: None (occurrence: None)
  Receive Date: 20110309
  Receipt Date: 20110211
  Transmission Date: 20110831
  Serious: No
  Sender: FDA-Public Use
  Company Number: US-B.I. PHARMACEUTICALS,INC./RIDGEFIELD-2011-BP-05963BP

PATIENT
  Age: 83 Year
  Sex: Female

DRUGS (3)
  1. CARVEDILOL [Concomitant]
     Indication: CARDIAC FAILURE
     Dosage: 25 MG
     Route: 048
  2. PRADAXA [Suspect]
     Dosage: 300 MG
     Route: 048
     Dates: start: 20110204
  3. HYDROCHLOROTHIAZIDE [Concomitant]
     Indication: CARDIAC FAILURE
     Dosage: 5 MG
     Route: 048

REACTIONS (1)
  - DIZZINESS [None]
